FAERS Safety Report 6103871-6 (Version None)
Quarter: 2009Q1

REPORT INFORMATION
  Report Type: 
  Country: None (occurrence: None)
  Receive Date: 20090227
  Receipt Date: 20080604
  Transmission Date: 20090719
  Serious: Yes (Hospitalization, Disabling)
  Sender: FDA-Public Use
  Company Number: 310008M08FRA

PATIENT
  Age: 38 Year
  Sex: Female

DRUGS (7)
  1. GONAL-F [Suspect]
     Indication: ASSISTED FERTILISATION
     Dosage: DOSAGE FORMS
     Dates: start: 20071101
  2. DYDROGESTERONE TAB [Concomitant]
  3. TRETINOIN [Concomitant]
  4. MEFENAMIC ACID [Concomitant]
  5. CLOMID [Concomitant]
  6. PUREGON (FOLLITROPIN BETA) [Concomitant]
  7. CHORIONIC GONADOTROPIN [Concomitant]

REACTIONS (8)
  - ALANINE AMINOTRANSFERASE INCREASED [None]
  - ARTHRALGIA [None]
  - ASPARTATE AMINOTRANSFERASE INCREASED [None]
  - BONE PAIN [None]
  - LIVER DISORDER [None]
  - MYALGIA [None]
  - NECK PAIN [None]
  - PAIN [None]
